FAERS Safety Report 13672446 (Version 6)
Quarter: 2017Q4

REPORT INFORMATION
  Report Type: Report from Study
  Country: CO (occurrence: CO)
  Receive Date: 20170620
  Receipt Date: 20171103
  Transmission Date: 20180320
  Serious: Yes (Death, Hospitalization, Other)
  Sender: FDA-Public Use
  Company Number: PHHY2017CO078589

PATIENT
  Age: 65 Year
  Sex: Male
  Weight: 65 kg

DRUGS (4)
  1. CARVEDILOL. [Concomitant]
     Active Substance: CARVEDILOL
     Indication: PRODUCT USED FOR UNKNOWN INDICATION
     Dosage: 6.25 OT, Q12H
     Route: 048
  2. LEVOTHYROXINE. [Concomitant]
     Active Substance: LEVOTHYROXINE
     Indication: HYPOTHYROIDISM
     Dosage: 100 MG, QD
     Route: 048
  3. ENTRESTO [Suspect]
     Active Substance: SACUBITRIL\VALSARTAN
     Indication: CARDIAC FAILURE
     Dosage: 1 DF (50 MG), Q12H
     Route: 048
     Dates: start: 20170316
  4. APIXABAN [Concomitant]
     Active Substance: APIXABAN
     Indication: ANTICOAGULANT THERAPY
     Dosage: 5 MG, Q12H
     Route: 065
     Dates: start: 201703

REACTIONS (14)
  - Ventricular arrhythmia [Unknown]
  - Bilirubin conjugated increased [Unknown]
  - Death [Fatal]
  - Swelling [Unknown]
  - Abdominal distension [Recovering/Resolving]
  - Discomfort [Unknown]
  - Blood creatinine increased [Unknown]
  - Blood bilirubin increased [Unknown]
  - Blood bilirubin unconjugated increased [Unknown]
  - Renal failure [Recovering/Resolving]
  - Fluid retention [Recovering/Resolving]
  - Blood creatinine abnormal [Unknown]
  - Hepatic failure [Unknown]
  - Blood urea increased [Unknown]

NARRATIVE: CASE EVENT DATE: 20170601
